FAERS Safety Report 25192090 (Version 3)
Quarter: 2025Q2

REPORT INFORMATION
  Report Type: Report from Study
  Country: US (occurrence: US)
  Receive Date: 20250414
  Receipt Date: 20250512
  Transmission Date: 20250716
  Serious: Yes (Other)
  Sender: OTSUKA
  Company Number: US-OTSUKA-2024_028140

PATIENT
  Sex: Female

DRUGS (2)
  1. TOLVAPTAN [Suspect]
     Active Substance: TOLVAPTAN
     Indication: Congenital cystic kidney disease
     Route: 065
     Dates: start: 20240929
  2. LOSARTAN [Suspect]
     Active Substance: LOSARTAN
     Indication: Product used for unknown indication
     Route: 065

REACTIONS (7)
  - Sarcoidosis [Not Recovered/Not Resolved]
  - Renal impairment [Unknown]
  - Constipation [Unknown]
  - Headache [Unknown]
  - Thirst [Unknown]
  - Polyuria [Unknown]
  - Dizziness [Unknown]

NARRATIVE: CASE EVENT DATE: 20241011
